FAERS Safety Report 11071492 (Version 1)
Quarter: 2015Q2

REPORT INFORMATION
  Report Type: Spontaneous
  Country: US (occurrence: US)
  Receive Date: 20150428
  Receipt Date: 20150428
  Transmission Date: 20150821
  Serious: Yes (Other)
  Sender: FDA-Public Use
  Company Number: US-PFIZER INC-2015137631

PATIENT
  Age: 78 Year
  Sex: Female

DRUGS (7)
  1. CALCIUM +VIT D [Concomitant]
     Active Substance: CALCIUM\VITAMIN D
     Dosage: UNK, 1X/DAY
  2. TORISEL [Suspect]
     Active Substance: TEMSIROLIMUS
     Indication: METASTATIC RENAL CELL CARCINOMA
     Dosage: UNK
     Dates: start: 201309, end: 201310
  3. XGEVA [Concomitant]
     Active Substance: DENOSUMAB
     Dosage: 120 MG, EVERY 28 DAYS
  4. PROCRIT [Concomitant]
     Active Substance: ERYTHROPOIETIN
     Indication: HAEMATOCRIT
     Dosage: UNK
     Route: 058
  5. COUMADIN [Concomitant]
     Active Substance: WARFARIN SODIUM
     Indication: PULMONARY EMBOLISM
     Dosage: 7 MG, AS NEEDED
  6. HYDROMORPHONE [Concomitant]
     Active Substance: HYDROMORPHONE
     Indication: MUSCULOSKELETAL DISCOMFORT
     Dosage: 5/325 ONE EVERY 6-8 HOURS, AS NEEDED
  7. TORISEL [Suspect]
     Active Substance: TEMSIROLIMUS
     Dosage: UNK
     Dates: start: 201312, end: 20150401

REACTIONS (9)
  - Pneumonitis [Unknown]
  - Metastatic renal cell carcinoma [Unknown]
  - Hiatus hernia [Unknown]
  - Disease progression [Unknown]
  - Anaemia [Unknown]
  - Haematuria [Recovered/Resolved]
  - Pulmonary embolism [Unknown]
  - Arthralgia [Unknown]
  - Diverticulum [Unknown]

NARRATIVE: CASE EVENT DATE: 201310
